FAERS Safety Report 7385008-9 (Version None)
Quarter: 2011Q1

REPORT INFORMATION
  Report Type: 
  Country: None (occurrence: None)
  Receive Date: 20110330
  Receipt Date: 20110321
  Transmission Date: 20110831
  Serious: Yes (Other)
  Sender: FDA-Public Use
  Company Number: IT-BAYER-2011-024912

PATIENT
  Sex: Male

DRUGS (1)
  1. ACETYLSALICYLIC ACID SRT [Suspect]
     Dosage: DAILY DOSE 100 MG
     Route: 048
     Dates: start: 20100131, end: 20110130

REACTIONS (1)
  - GINGIVAL BLEEDING [None]
